FAERS Safety Report 6616433-9 (Version None)
Quarter: 2010Q1

REPORT INFORMATION
  Report Type: 
  Country: None (occurrence: None)
  Receive Date: 20100305
  Receipt Date: 20100302
  Transmission Date: 20100710
  Serious: Yes (Death)
  Sender: FDA-Public Use
  Company Number: PHEH2010US02847

PATIENT
  Age: 80 Year
  Sex: Female
  Weight: 80.726 kg

DRUGS (12)
  1. TEKTURNA [Suspect]
     Indication: HYPERTENSION
     Dosage: 150 MG, QD
     Route: 048
     Dates: start: 20060417, end: 20100101
  2. TEKTURNA [Suspect]
     Indication: DIABETES MELLITUS
  3. TEKTURNA [Suspect]
     Indication: DIABETIC NEPHROPATHY
  4. COZAAR [Suspect]
     Dosage: 50 MG/H, QD
     Route: 048
     Dates: start: 20060417, end: 20100101
  5. LISINOPRIL [Suspect]
     Indication: HYPERTENSION
     Dosage: 20 MG, QD
     Route: 048
     Dates: start: 20060417, end: 20100101
  6. LISINOPRIL [Suspect]
     Indication: DIABETES MELLITUS
  7. LISINOPRIL [Suspect]
     Indication: DIABETIC NEPHROPATHY
  8. DIGOXIN [Concomitant]
     Dosage: UNK, UNK
     Route: 065
  9. PROTONIX [Concomitant]
     Dosage: UNK, UNK
     Route: 065
  10. LOPID [Concomitant]
     Dosage: UNK, UNK
     Route: 065
  11. CLONIDINE [Concomitant]
     Dosage: UNK, UNK
     Route: 065
  12. INSULIN [Concomitant]
     Dosage: UNK, UNK
     Route: 065

REACTIONS (5)
  - ANGIOEDEMA [None]
  - CARDIO-RESPIRATORY ARREST [None]
  - DYSPHAGIA [None]
  - DYSPNOEA [None]
  - PHARYNGEAL OEDEMA [None]
